FAERS Safety Report 9236910 (Version 3)
Quarter: 2014Q1

REPORT INFORMATION
  Report Type: Spontaneous
  Country: BR (occurrence: BR)
  Receive Date: 20130417
  Receipt Date: 20140122
  Transmission Date: 20141002
  Serious: Yes (Hospitalization, Other)
  Sender: FDA-Public Use
  Company Number: BR-PFIZER INC-2013116115

PATIENT
  Age: 44 Year
  Sex: Female
  Weight: 72 kg

DRUGS (13)
  1. LYRICA [Suspect]
     Indication: FIBROMYALGIA
     Dosage: 1 CAPSULE (150 MG), 1X/DAY
     Route: 048
     Dates: start: 2008
  2. LYRICA [Suspect]
     Dosage: 150 MG, 1X/DAY
     Route: 048
     Dates: start: 200907, end: 2009
  3. LYRICA [Suspect]
     Dosage: 150 MG, 1X/DAY
     Route: 048
     Dates: start: 2011
  4. LYRICA [Suspect]
     Dosage: 1 CAPSULE (75 MG), 1X/DAY
     Dates: start: 201210
  5. LYRICA [Suspect]
     Dosage: ONE CAPSULE OF 150MG AND ONE CAPSULE OF 75MG DAILY, UNSPECIFIED FREQUENCY
     Dates: start: 2013
  6. LYRICA [Suspect]
     Dosage: 4 TABLETS OF 150 MG, DAILY
  7. RIVOTRIL [Concomitant]
     Indication: MENTAL DISORDER
     Dosage: UNK
     Dates: start: 2004
  8. RIVOTRIL [Concomitant]
     Indication: ANXIETY
  9. CODEINE [Concomitant]
     Indication: PAIN
     Dosage: UNK
     Dates: start: 2012
  10. CODEINE [Concomitant]
     Indication: MYALGIA
  11. PANTOPRAZOLE [Concomitant]
     Indication: GASTRIC DISORDER
     Dosage: 1 CAPSULE (40 MG), 2X/DAY
     Dates: start: 2004
  12. SERTRALINE [Concomitant]
     Indication: DEPRESSION
     Dosage: UNK
     Dates: start: 2012
  13. TRAMADOL [Concomitant]
     Indication: PAIN

REACTIONS (30)
  - Gastrointestinal carcinoma [Recovered/Resolved]
  - Tumour invasion [Recovered/Resolved]
  - Feeling abnormal [Recovering/Resolving]
  - Abdominal pain [Unknown]
  - Abnormal faeces [Unknown]
  - Vomiting [Recovering/Resolving]
  - Mouth haemorrhage [Recovering/Resolving]
  - Epistaxis [Recovering/Resolving]
  - Eye haemorrhage [Recovering/Resolving]
  - Weight decreased [Unknown]
  - Bipolar disorder [Unknown]
  - Kyphosis [Unknown]
  - Scoliosis [Unknown]
  - Spinal pain [Unknown]
  - Muscle contractions involuntary [Recovering/Resolving]
  - Hypertensive crisis [Recovered/Resolved]
  - Tongue movement disturbance [Recovered/Resolved]
  - Drug dependence [Unknown]
  - Malaise [Unknown]
  - Flushing [Recovered/Resolved]
  - Agitation [Unknown]
  - Intentional drug misuse [Unknown]
  - Musculoskeletal chest pain [Unknown]
  - Drug effect incomplete [Unknown]
  - Memory impairment [Not Recovered/Not Resolved]
  - Fluid retention [Not Recovered/Not Resolved]
  - Oedema peripheral [Unknown]
  - Fibromyalgia [Unknown]
  - Hypokinesia [Unknown]
  - Myalgia [Unknown]
